FAERS Safety Report 5585565-9 (Version None)
Quarter: 2008Q1

REPORT INFORMATION
  Report Type: 
  Country: None (occurrence: None)
  Receive Date: 20080109
  Receipt Date: 20080103
  Transmission Date: 20080703
  Serious: Yes (Other)
  Sender: FDA-Public Use
  Company Number: B0361635A

PATIENT
  Age: 54 Year
  Sex: Female

DRUGS (3)
  1. PAROXETINE HYDROCHLORIDE [Suspect]
     Route: 065
     Dates: start: 19970428
  2. PAROXETINE HYDROCHLORIDE [Suspect]
     Route: 065
  3. AMITRIPTYLINE HCL [Concomitant]
     Indication: FACIAL PAIN
     Dates: start: 20030317

REACTIONS (8)
  - AGGRESSION [None]
  - DIZZINESS [None]
  - DRUG WITHDRAWAL SYNDROME [None]
  - HYPERHIDROSIS [None]
  - INFLUENZA LIKE ILLNESS [None]
  - MOOD SWINGS [None]
  - PANIC ATTACK [None]
  - TREMOR [None]
